FAERS Safety Report 5596602-X (Version None)
Quarter: 2008Q1

REPORT INFORMATION
  Report Type: 
  Country: None (occurrence: None)
  Receive Date: 20080118
  Receipt Date: 20080109
  Transmission Date: 20080703
  Serious: Yes (Hospitalization)
  Sender: FDA-Public Use
  Company Number: CH-PFIZER INC-2008002582

PATIENT
  Sex: Male

DRUGS (4)
  1. SORTIS [Suspect]
     Indication: HYPERLIPIDAEMIA
     Route: 048
  2. ZYPREXA [Suspect]
     Indication: PARANOID PERSONALITY DISORDER
     Route: 048
     Dates: start: 20071011, end: 20071111
  3. TRITTICO [Concomitant]
     Indication: DEPRESSION
     Dosage: DAILY DOSE:200MG
     Route: 048
  4. DIAMICRON [Concomitant]
     Indication: TYPE 2 DIABETES MELLITUS
     Dosage: DAILY DOSE:60MG
     Route: 048

REACTIONS (3)
  - BLOOD CREATINE PHOSPHOKINASE INCREASED [None]
  - EXTRAPYRAMIDAL DISORDER [None]
  - NEUROLEPTIC MALIGNANT SYNDROME [None]
